FAERS Safety Report 25851569 (Version 1)
Quarter: 2025Q3

REPORT INFORMATION
  Report Type: Spontaneous
  Country: EU (occurrence: EU)
  Receive Date: 20250926
  Receipt Date: 20250926
  Transmission Date: 20251020
  Serious: Yes (Death, Other)
  Sender: ORGANON
  Company Number: EU-009507513-1908BEL007781

PATIENT
  Age: 65 Year
  Sex: Female

DRUGS (8)
  1. MIRTAZAPINE [Suspect]
     Active Substance: MIRTAZAPINE
     Dosage: 15 MILLIGRAM/DAY
     Route: 048
  2. NEFOPAM [Suspect]
     Active Substance: NEFOPAM
     Dosage: 30 MILLIGRAM/DAY
     Route: 048
  3. NEFOPAM [Suspect]
     Active Substance: NEFOPAM
     Dosage: 120 MILLIGRAM/DAY
     Route: 048
  4. AMISULPRIDE [Suspect]
     Active Substance: AMISULPRIDE
     Dosage: 50 MILLIGRAM/DAY
  5. ARIPIPRAZOLE [Suspect]
     Active Substance: ARIPIPRAZOLE
     Dosage: 15 MILLIGRAM/DAY
  6. AMITRIPTYLINE HYDROCHLORIDE [Suspect]
     Active Substance: AMITRIPTYLINE HYDROCHLORIDE
     Dosage: 75 MILLIGRAM/DAY
  7. BUPROPION [Suspect]
     Active Substance: BUPROPION
     Dosage: 300 MILLIGRAM/DAY
  8. TRAMADOL HYDROCHLORIDE [Suspect]
     Active Substance: TRAMADOL HYDROCHLORIDE
     Dosage: 300 MILLIGRAM/DAY

REACTIONS (2)
  - Shock [Fatal]
  - Serotonin syndrome [Fatal]
